FAERS Safety Report 10050074 (Version 1)
Quarter: 2014Q1

REPORT INFORMATION
  Report Type: Spontaneous
  Country: US (occurrence: None)
  Receive Date: 20140331
  Receipt Date: 20140331
  Transmission Date: 20141002
  Serious: No
  Sender: FDA-Public Use
  Company Number: None

PATIENT
  Age: 57 Year
  Sex: Male

DRUGS (1)
  1. MIRVASO 0.33% GALDERMA [Suspect]
     Indication: ROSACEA
     Dosage: TOPICAL APPLICATION, ONCE DAILY, APPLIED TO A SURFACE, USUALLY THE SKIN
     Dates: start: 20140301, end: 20140330

REACTIONS (4)
  - Flushing [None]
  - Emotional distress [None]
  - Feeling hot [None]
  - Condition aggravated [None]
